FAERS Safety Report 5846229-7 (Version None)
Quarter: 2008Q3

REPORT INFORMATION
  Report Type: 
  Country: None (occurrence: None)
  Receive Date: 20080813
  Receipt Date: 20080604
  Transmission Date: 20090109
  Serious: Yes (Death)
  Sender: FDA-Public Use
  Company Number: 2008047954

PATIENT
  Sex: Female

DRUGS (2)
  1. FRAGMIN [Suspect]
     Dosage: 15000 I.U., SUBCUTANEOUS
     Route: 058
  2. CHEMOTHERAPY NOS (CHEMOTHERAPY NOS) [Suspect]

REACTIONS (1)
  - FEBRILE NEUTROPENIA [None]
